FAERS Safety Report 16039399 (Version 2)
Quarter: 2020Q3

REPORT INFORMATION
  Report Type: Other
  Country: AT (occurrence: AT)
  Receive Date: 20190306
  Receipt Date: 20191107
  Transmission Date: 20201104
  Serious: Yes (Death, Hospitalization, Other)
  Sender: FDA-Public Use
  Company Number: AT-APOTEX-2019AP008603

PATIENT
  Age: 80 Year
  Sex: Female

DRUGS (91)
  1. PRAMIPEXOLE. [Suspect]
     Active Substance: PRAMIPEXOLE
     Indication: RESTLESS LEGS SYNDROME
     Dosage: 2.1 MG, QD, ONCE IN THE MORNING
     Route: 065
  2. RISPERIDONE. [Suspect]
     Active Substance: RISPERIDONE
     Indication: PSYCHOTIC DISORDER
  3. LEVOTHYROXINE. [Suspect]
     Active Substance: LEVOTHYROXINE
     Indication: PRODUCT USED FOR UNKNOWN INDICATION
     Dosage: 125 MG, QD, HALF DOSE ONCE IN THE MORNING
     Route: 065
  4. LEVOTHYROXINE. [Suspect]
     Active Substance: LEVOTHYROXINE
     Indication: HYPOTHYROIDISM
     Dosage: 125 ?G, HALF DOSE ONCE IN THE MORNING
     Route: 065
  5. VITAMIN D                          /00107901/ [Suspect]
     Active Substance: ERGOCALCIFEROL
     Indication: VITAMIN D DEFICIENCY
     Dosage: 16000 IU, Q.WK.
     Route: 065
  6. DICLOFENAC [Suspect]
     Active Substance: DICLOFENAC
     Dosage: 75 MG, PRN
     Route: 065
  7. FLUTICASONE. [Suspect]
     Active Substance: FLUTICASONE
     Dosage: 920 ?G, QD, TWO PUFFS IN THE MORNING AND TWO PUFFS AT NIGHT, INHALATION
     Route: 055
     Dates: start: 20151123
  8. BISOPROLOL FUMARATE. [Suspect]
     Active Substance: BISOPROLOL FUMARATE
     Indication: PRODUCT USED FOR UNKNOWN INDICATION
     Dosage: 3 MG, QD
     Route: 065
  9. THEOPHYLLINE [Concomitant]
     Active Substance: THEOPHYLLINE ANHYDROUS
     Indication: CHRONIC OBSTRUCTIVE PULMONARY DISEASE
     Dosage: 200 MG, QD,  0.5 PER DAY
     Route: 065
  10. ALGELDRATE [Concomitant]
     Active Substance: ALGELDRATE
     Indication: GASTROOESOPHAGEAL REFLUX DISEASE
     Dosage: 340 MG, AS NEEDED, MAXIMUM 2X1
     Route: 065
  11. IBANDRONIC ACID. [Concomitant]
     Active Substance: IBANDRONIC ACID
     Indication: OSTEOPOROSIS
     Dosage: 3 MG, EVERY 3 MONTHS
     Route: 065
  12. ACETYLCYSTEINE. [Concomitant]
     Active Substance: ACETYLCYSTEINE
     Indication: CHRONIC OBSTRUCTIVE PULMONARY DISEASE
     Dosage: 600 MG, QD, ONCE IN THE MORNING; FOR 7 DAYS
     Route: 065
  13. FUROSEMIDE. [Concomitant]
     Active Substance: FUROSEMIDE
     Indication: DIURETIC THERAPY
     Dosage: 40 MG, UNK
     Route: 065
  14. FUROSEMIDE. [Concomitant]
     Active Substance: FUROSEMIDE
     Indication: PRODUCT USED FOR UNKNOWN INDICATION
  15. PREDNISONE. [Concomitant]
     Active Substance: PREDNISONE
     Indication: CHRONIC OBSTRUCTIVE PULMONARY DISEASE
     Dosage: 5 MG, QD, ONCE IN THE MORNING
     Route: 065
  16. SERTRALINE [Suspect]
     Active Substance: SERTRALINE HYDROCHLORIDE
     Indication: PANIC ATTACK
     Dosage: 50 MG, QD, DAILY; ONCE IN THE MORNING
     Route: 065
  17. PRAMIPEXOLE. [Suspect]
     Active Substance: PRAMIPEXOLE
     Dosage: 2 MG, QD
     Route: 065
  18. HYDROMORPHONE [Suspect]
     Active Substance: HYDROMORPHONE
     Indication: PAIN
     Dosage: 4 MG, QD, DAILY; ONCE IN THE MORNING
     Route: 065
  19. RISPERIDONE. [Suspect]
     Active Substance: RISPERIDONE
     Indication: PRODUCT USED FOR UNKNOWN INDICATION
     Dosage: 1 MG, QD, HALF DOSE AT NIGHT
     Route: 065
  20. ATORVASTATIN [Suspect]
     Active Substance: ATORVASTATIN
     Indication: HYPERCHOLESTEROLAEMIA
     Dosage: 40 MG, Q.H.S.
     Route: 065
  21. IBANDRONIC ACID. [Suspect]
     Active Substance: IBANDRONIC ACID
     Indication: OSTEOPOROSIS
  22. SPIRIVA [Suspect]
     Active Substance: TIOTROPIUM BROMIDE MONOHYDRATE
     Indication: CHRONIC OBSTRUCTIVE PULMONARY DISEASE
     Dosage: 18 ?G, QD, INHALATION
     Route: 050
     Dates: start: 20151123
  23. BISOPROLOL FUMARATE. [Suspect]
     Active Substance: BISOPROLOL FUMARATE
     Indication: PRODUCT USED FOR UNKNOWN INDICATION
  24. VITAMIN D                          /00107901/ [Concomitant]
     Active Substance: ERGOCALCIFEROL
     Indication: VITAMIN D DEFICIENCY
     Dosage: 16000 I.E, Q.WK.
     Route: 065
  25. DIOSMIN [Concomitant]
     Active Substance: DIOSMIN
     Indication: PERIPHERAL VENOUS DISEASE
     Dosage: 1 DF, QD
     Route: 065
  26. ATORVASTATIN [Concomitant]
     Active Substance: ATORVASTATIN
     Indication: HYPERCHOLESTEROLAEMIA
     Dosage: 40 MG, QD, ONCE AT NIGHT
     Route: 065
  27. ACETYLSALICYLIC ACID [Suspect]
     Active Substance: ASPIRIN
     Indication: CORONARY ARTERY DISEASE
     Dosage: 100 MG, QD, DAILY; ONCE IN THE MORNING
     Route: 065
  28. DIOSMIN [Suspect]
     Active Substance: DIOSMIN
     Indication: PERIPHERAL VENOUS DISEASE
     Dosage: 450 MG, QD ONCE IN MORNING
     Route: 065
  29. THEOPHYLLINE [Suspect]
     Active Substance: THEOPHYLLINE ANHYDROUS
     Indication: PAIN
     Dosage: 200 MG, Q.12H, 0.5 PER DAY
     Route: 065
  30. IBANDRONIC ACID. [Suspect]
     Active Substance: IBANDRONIC ACID
     Indication: PERIPHERAL VENOUS DISEASE
     Dosage: 3 MG, EVERY 3 MONTHS
     Route: 065
  31. SALMETEROL [Suspect]
     Active Substance: SALMETEROL
     Indication: CHRONIC OBSTRUCTIVE PULMONARY DISEASE
     Dosage: 2 DF, QD, INHALATION
     Route: 050
  32. ACETYLCYSTEINE. [Suspect]
     Active Substance: ACETYLCYSTEINE
     Indication: CHRONIC OBSTRUCTIVE PULMONARY DISEASE
     Dosage: 600 MG, QD ONCE IN THE MORNING
     Route: 065
  33. BENSERAZIDE [Concomitant]
     Active Substance: BENSERAZIDE
     Indication: HYPOTHYROIDISM
  34. SERTRALINE [Suspect]
     Active Substance: SERTRALINE HYDROCHLORIDE
     Indication: DEPRESSION
     Dosage: 25 MG, QD
     Route: 065
  35. BISOPROLOL [Suspect]
     Active Substance: BISOPROLOL
     Indication: CORONARY ARTERY DISEASE
     Dosage: 2.5 MG, Q.12H  IN TWO DIVIDED DOSES, ONE AT MORNING AND ONE AT NIGHT
     Route: 065
  36. BENSERAZIDE [Suspect]
     Active Substance: BENSERAZIDE
     Indication: RESTLESS LEGS SYNDROME
     Dosage: 25 MG, QD, DAILY; ONCE AT NIGHT
     Route: 065
  37. ALPRAZOLAM. [Suspect]
     Active Substance: ALPRAZOLAM
     Indication: FEAR
     Dosage: 0.5 MG, QD, IN TWO DIVIDED DOSES, ONE AT MORNING AND ONE AT NIGHT
     Route: 065
  38. DULOXETINE. [Suspect]
     Active Substance: DULOXETINE
     Indication: PAIN
     Dosage: 60 MG, Q.12H
     Route: 065
  39. FENOTEROL [Suspect]
     Active Substance: FENOTEROL
     Indication: CHRONIC OBSTRUCTIVE PULMONARY DISEASE
     Dosage: 0.05 MG, Q.12H, BID, INHALATION
     Route: 055
  40. OXYGEN. [Suspect]
     Active Substance: OXYGEN
     Indication: CHRONIC OBSTRUCTIVE PULMONARY DISEASE
     Dosage: 2 L, 2 L PER MIN CONTINUOUSLY
     Route: 065
  41. OXYGEN. [Suspect]
     Active Substance: OXYGEN
     Indication: HYPOXIA
  42. METHYLPREDNISOLONE. [Suspect]
     Active Substance: METHYLPREDNISOLONE
     Indication: PRODUCT USED FOR UNKNOWN INDICATION
     Dosage: 64 MG, QD
     Route: 042
  43. PREDNISONE. [Suspect]
     Active Substance: PREDNISONE
     Indication: CHRONIC OBSTRUCTIVE PULMONARY DISEASE
     Dosage: 5 MG, QD
     Route: 065
  44. PREDNISONE. [Suspect]
     Active Substance: PREDNISONE
     Dosage: 25 MG, QD
     Route: 065
  45. DIPHENHYDRAMINE. [Concomitant]
     Active Substance: DIPHENHYDRAMINE
     Indication: PRODUCT USED FOR UNKNOWN INDICATION
  46. BENSERAZIDE [Concomitant]
     Active Substance: BENSERAZIDE
     Indication: RESTLESS LEGS SYNDROME
     Dosage: UNK
     Route: 065
  47. THEOPHYLLINE [Concomitant]
     Active Substance: THEOPHYLLINE ANHYDROUS
     Dosage: 200 MG, Q.12H, 0.5 PER 1 DAY
     Route: 065
  48. SALMETEROL [Concomitant]
     Active Substance: SALMETEROL
     Dosage: 94 ?G, QD, INHALATION
     Route: 050
  49. TRAMADOL. [Suspect]
     Active Substance: TRAMADOL
     Indication: PAIN
     Dosage: 200 MG, QD, DAILY; ONCE AT NIGHT
     Route: 065
  50. ACETAZOLAMIDE. [Suspect]
     Active Substance: ACETAZOLAMIDE
     Indication: ALKALOSIS
     Dosage: 250 MG, Q.WK.
     Route: 065
     Dates: start: 20151123
  51. GABAPENTIN. [Suspect]
     Active Substance: GABAPENTIN
     Dosage: 1200 MG, QD
     Route: 065
  52. FLUTICASONE. [Suspect]
     Active Substance: FLUTICASONE
     Indication: CHRONIC OBSTRUCTIVE PULMONARY DISEASE
     Dosage: 460 ?G, QD, INHALATION
     Route: 055
  53. METAMIZOLE SODIUM [Suspect]
     Active Substance: METAMIZOLE SODIUM
     Indication: PRODUCT USED FOR UNKNOWN INDICATION
     Dosage: 25 MG, UNK
     Route: 065
  54. FENOTEROL [Concomitant]
     Active Substance: FENOTEROL
     Indication: CHRONIC OBSTRUCTIVE PULMONARY DISEASE
     Dosage: 0.05 MG, QD, PUFFS AS NEEDED IN CASE OF DYSPNOEA; MAXIMUM 4X2, INHALATION
     Route: 050
  55. HESPERIDIN [Concomitant]
     Active Substance: HESPERIDIN
     Indication: PERIPHERAL VENOUS DISEASE
     Dosage: 50 MG, QD, ONCE IN THE MORNING, AT PATIENTS INSISTENCE
     Route: 065
  56. DIOSMIN [Concomitant]
     Active Substance: DIOSMIN
     Dosage: 450 MG, QD, ONCE IN THE MORNING
     Route: 065
  57. LEVOTHYROXINE. [Concomitant]
     Active Substance: LEVOTHYROXINE
     Indication: HYPOTHYROIDISM
     Dosage: 75 ?G, QD, ONCE IN MORNING
     Route: 065
  58. CLOPIDOGREL [Suspect]
     Active Substance: CLOPIDOGREL BISULFATE
     Indication: CORONARY ARTERY DISEASE
     Dosage: 75 MG, QD, DAILY; ONCE IN THE MORNING
     Route: 065
  59. ACETAZOLAMIDE. [Suspect]
     Active Substance: ACETAZOLAMIDE
     Indication: HYPERCAPNIA
     Dosage: 50 MG, QD, DAILY; ONCE IN THE MORNING
     Route: 016
  60. GABAPENTIN. [Suspect]
     Active Substance: GABAPENTIN
     Indication: PAIN
     Dosage: 600 MG, 0.5 PER DAY, 1200 MILLIGRAM DAILY;
     Route: 065
  61. GABAPENTIN. [Suspect]
     Active Substance: GABAPENTIN
     Dosage: 600 MG, QD
     Route: 065
  62. OMEPRAZOLE. [Suspect]
     Active Substance: OMEPRAZOLE
     Indication: GASTRITIS
     Dosage: 40 MG, QD
     Route: 065
  63. OXYGEN. [Suspect]
     Active Substance: OXYGEN
     Indication: PERIPHERAL VENOUS DISEASE
  64. DICLOFENAC [Suspect]
     Active Substance: DICLOFENAC
     Indication: PAIN
     Dosage: 75 MG, Q.12H
     Route: 065
  65. SALMETEROL [Suspect]
     Active Substance: SALMETEROL
     Dosage: 47 ?G, Q.12H, 2 DOSAGE FORMS, INHALATION, TWO PUFFS IN THE MORNING AND TWO PUFFS AT NIGHT
     Route: 055
  66. FLUTICASONE. [Suspect]
     Active Substance: FLUTICASONE
     Dosage: 460 ?G, Q.12H, 460 UG, BID, PUFFS, INHALATION
     Route: 055
     Dates: start: 20151123
  67. DIPHENHYDRAMINE. [Concomitant]
     Active Substance: DIPHENHYDRAMINE
     Indication: ANTIALLERGIC THERAPY
     Dosage: UNK
     Route: 065
  68. DICLOFENAC [Concomitant]
     Active Substance: DICLOFENAC
     Indication: PAIN
     Dosage: 25 MG, QD
     Route: 065
  69. OMEPRAZOLE. [Concomitant]
     Active Substance: OMEPRAZOLE
     Indication: GASTRITIS
     Dosage: 40 MG, QD, 0.5 MG PER DAY
     Route: 065
  70. IPRATROPIUM [Concomitant]
     Active Substance: IPRATROPIUM
     Indication: CHRONIC OBSTRUCTIVE PULMONARY DISEASE
     Dosage: 0.02 MG, PUFFS AS NEEDED IN CASE OF DYSPNOEA; MAXIMUM 4X2, INHALATION
     Route: 050
  71. LEVOTHYROXINE. [Concomitant]
     Active Substance: LEVOTHYROXINE
     Dosage: 125 ?G, HALF DOSE ONCE IN THE MORNING
     Route: 065
  72. FLUTICASONE. [Concomitant]
     Active Substance: FLUTICASONE
     Indication: CHRONIC OBSTRUCTIVE PULMONARY DISEASE
     Dosage: 460 ?G, BID, 460 ?G, BID TWO PUFFS IN THE MORNING AND TWO PUFFS AT NIGHT
     Route: 065
  73. LEVODOPA [Suspect]
     Active Substance: LEVODOPA
     Indication: RESTLESS LEGS SYNDROME
     Dosage: 100 MG, QD, DAILY; ONCE AT NIGHT
     Route: 065
  74. OMEPRAZOLE. [Suspect]
     Active Substance: OMEPRAZOLE
     Dosage: 40 MG, Q.12H, BID, 0.5 PER 1 DAY
     Route: 065
  75. THEOPHYLLINE [Suspect]
     Active Substance: THEOPHYLLINE ANHYDROUS
     Indication: CHRONIC OBSTRUCTIVE PULMONARY DISEASE
     Dosage: 4 MG, QD
     Route: 065
  76. DICLOFENAC [Concomitant]
     Active Substance: DICLOFENAC
     Indication: CHRONIC OBSTRUCTIVE PULMONARY DISEASE
     Dosage: 75 MG, QD, AS NEEDED IN CASE OF PAIN; MAXIMUM 2X1
     Route: 065
  77. IBANDRONIC ACID. [Concomitant]
     Active Substance: IBANDRONIC ACID
     Indication: PERIPHERAL VENOUS DISEASE
  78. SERTRALINE [Suspect]
     Active Substance: SERTRALINE HYDROCHLORIDE
     Indication: RESTLESS LEGS SYNDROME
  79. ALPRAZOLAM. [Suspect]
     Active Substance: ALPRAZOLAM
     Indication: DYSPNOEA
  80. ACETAZOLAMIDE. [Suspect]
     Active Substance: ACETAZOLAMIDE
     Indication: RESTLESS LEGS SYNDROME
  81. DULOXETINE. [Suspect]
     Active Substance: DULOXETINE
     Indication: DEPRESSION
     Dosage: 60 MG, QD, ONCE IN MORNING
     Route: 065
  82. DULOXETINE. [Suspect]
     Active Substance: DULOXETINE
     Dosage: 600 MG, QD PER DAY
     Route: 065
  83. LEVOTHYROXINE. [Suspect]
     Active Substance: LEVOTHYROXINE
     Indication: HYPERTHYROIDISM
     Dosage: 75 ?G, QD
     Route: 065
  84. LISALGIL [Suspect]
     Active Substance: METAMIZOLE SODIUM
     Indication: PRODUCT USED FOR UNKNOWN INDICATION
     Dosage: 25 MG, QD
     Route: 042
  85. DICLOFENAC [Suspect]
     Active Substance: DICLOFENAC
     Dosage: 150 MG, QD DRUG INTERVAL DOSAGE UNIT NUMBER 1 DAY
     Route: 065
  86. TIOTROPIUM [Suspect]
     Active Substance: TIOTROPIUM
     Indication: CHRONIC OBSTRUCTIVE PULMONARY DISEASE
     Dosage: 18 ?G, Q.AM PUFF ONCE IN THE MORNING
     Route: 055
  87. TIOTROPIUM [Concomitant]
     Active Substance: TIOTROPIUM
     Indication: CHRONIC OBSTRUCTIVE PULMONARY DISEASE
     Dosage: 18 ?G, QD, PUFF ONCE IN THE MORNING, INHALATION
     Route: 055
  88. PIPERACILLIN/TAZOBACTAM [Concomitant]
     Active Substance: PIPERACILLIN SODIUM\TAZOBACTAM SODIUM
     Indication: PRODUCT USED FOR UNKNOWN INDICATION
     Dosage: UNK
     Route: 065
  89. MORPHINE HYDROCHLORIDE [Concomitant]
     Active Substance: MORPHINE HYDROCHLORIDE
     Indication: PRODUCT USED FOR UNKNOWN INDICATION
     Dosage: UNK
     Route: 065
  90. PREDNISONE. [Concomitant]
     Active Substance: PREDNISONE
     Dosage: 25 MG, QD, ONCE IN THE MORNING
     Route: 065
  91. SALMETEROL [Concomitant]
     Active Substance: SALMETEROL
     Indication: CHRONIC OBSTRUCTIVE PULMONARY DISEASE
     Dosage: 47 ?G, QD, TWO PUFFS IN THE MORNING AND TWO PUFFS AT NIGHT
     Route: 065

REACTIONS (23)
  - Back pain [Fatal]
  - Death [Fatal]
  - Acute respiratory failure [Fatal]
  - Drug interaction [Fatal]
  - Clostridium difficile colitis [Fatal]
  - Pain [Fatal]
  - Urinary tract infection [Fatal]
  - Arthralgia [Fatal]
  - Delirium [Fatal]
  - Somnolence [Fatal]
  - Acute myocardial infarction [Fatal]
  - Acute myocardial infarction [Fatal]
  - Off label use [Fatal]
  - Erysipelas [Fatal]
  - Arthralgia [Unknown]
  - Pain [Fatal]
  - Prescribed underdose [Unknown]
  - Lung disorder [Fatal]
  - Clostridium difficile colitis [Fatal]
  - Hypercapnia [Fatal]
  - Death [Fatal]
  - Chronic obstructive pulmonary disease [Fatal]
  - Lung disorder [Fatal]

NARRATIVE: CASE EVENT DATE: 201510
